FAERS Safety Report 9745419 (Version 4)
Quarter: 2014Q1

REPORT INFORMATION
  Report Type: Report from Study
  Country: AR (occurrence: AR)
  Receive Date: 20131211
  Receipt Date: 20140122
  Transmission Date: 20141002
  Serious: Yes (Death, Hospitalization, Other)
  Sender: FDA-Public Use
  Company Number: PHHY2013AR144422

PATIENT
  Age: 78 Year
  Sex: Male

DRUGS (2)
  1. EXELON PATCH [Suspect]
     Indication: AMNESIA
     Dosage: 9.5 MG (PATCH 10 CM2), DAILY
     Route: 062
     Dates: end: 20130915
  2. EXELON PATCH [Suspect]
     Dosage: 9.5 MG (PATCH 10 CM2), DAILY
     Route: 062
     Dates: start: 201310

REACTIONS (7)
  - Cardio-respiratory arrest [Fatal]
  - Convulsion [Unknown]
  - Procedural complication [Unknown]
  - Thrombosis [Unknown]
  - Fall [Unknown]
  - Disorientation [Recovered/Resolved]
  - Headache [Unknown]
